FAERS Safety Report 5531670-2 (Version None)
Quarter: 2007Q4

REPORT INFORMATION
  Report Type: 
  Country: None (occurrence: None)
  Receive Date: 20071119
  Receipt Date: 20070823
  Transmission Date: 20080405
  Serious: No
  Sender: FDA-Public Use
  Company Number: TPA2007A01797

PATIENT
  Age: 56 Year
  Sex: Female
  Weight: 61.2356 kg

DRUGS (7)
  1. ROZEREM [Suspect]
     Indication: MIDDLE INSOMNIA
     Dosage: 8 MG, QHS, PER ORAL
     Route: 048
     Dates: start: 20070822
  2. MULTIVITAMIN [Concomitant]
  3. FISH TABLET (ALL OTHER THERAPEUTIC PRODUCTS) (TABLETS) [Concomitant]
  4. COENZYME Q10 [Concomitant]
  5. ALPHA LIPOIC ACID (THIOCTIC ACID) [Concomitant]
  6. BABY ASPIRIN (ACETYLSALICYLIC ACID) (TABLETS) [Concomitant]
  7. SULFAMETHOXAZOLE [Concomitant]

REACTIONS (6)
  - HANGOVER [None]
  - HEAD DISCOMFORT [None]
  - INITIAL INSOMNIA [None]
  - MIDDLE INSOMNIA [None]
  - POOR QUALITY SLEEP [None]
  - TENSION [None]
